FAERS Safety Report 5257929-4 (Version None)
Quarter: 2007Q1

REPORT INFORMATION
  Report Type: 
  Country: None (occurrence: None)
  Receive Date: 20061220
  Receipt Date: 20060922
  Transmission Date: 20070707
  Serious: No
  Sender: FDA-Public Use
  Company Number: 2006RL000342

PATIENT
  Age: 66 Year
  Sex: Male
  Weight: 94.3482 kg

DRUGS (6)
  1. OMACOR [Suspect]
     Indication: BLOOD TRIGLYCERIDES INCREASED
     Dosage: 2 GM; QD; PO
     Route: 048
     Dates: start: 20060801, end: 20060915
  2. GLUCOPHAGE [Concomitant]
  3. FLOMAX [Concomitant]
  4. ZEBETA [Concomitant]
  5. INSULIN [Concomitant]
  6. LIPITOR [Concomitant]

REACTIONS (1)
  - BACK PAIN [None]
